FAERS Safety Report 8439223-3 (Version None)
Quarter: 2012Q2

REPORT INFORMATION
  Report Type: 
  Country: None (occurrence: None)
  Receive Date: 20120615
  Receipt Date: 20120611
  Transmission Date: 20120825
  Serious: Yes (Other)
  Sender: FDA-Public Use
  Company Number: PHHY2012FR050477

PATIENT

DRUGS (3)
  1. MYCOPHENOLATE MOFETIL [Suspect]
     Indication: IMMUNOSUPPRESSION
     Dosage: UNK UKN, UNK
  2. STEROIDS NOS [Concomitant]
     Indication: IMMUNOSUPPRESSION
     Dosage: UNK UKN, UNK
  3. SIROLIMUS [Concomitant]
     Indication: IMMUNOSUPPRESSION
     Dosage: UNK UKN, UNK

REACTIONS (2)
  - INTESTINAL VILLI ATROPHY [None]
  - DIARRHOEA [None]
